FAERS Safety Report 5303010-5 (Version None)
Quarter: 2007Q2

REPORT INFORMATION
  Report Type: 
  Country: None (occurrence: None)
  Receive Date: 20070413
  Receipt Date: 20070403
  Transmission Date: 20071010
  Serious: Yes (Death)
  Sender: FDA-Public Use
  Company Number: 20073691

PATIENT
  Age: 48 Year
  Sex: Male

DRUGS (2)
  1. LIORESAL [Suspect]
     Indication: MUSCLE SPASTICITY
     Dosage: UNK MCG, DAILY; INTRATHECAL
     Route: 039
  2. MORPHIINE [Concomitant]

REACTIONS (5)
  - CATHETER RELATED COMPLICATION [None]
  - DRUG INEFFECTIVE [None]
  - FALL [None]
  - INFUSION SITE FIBROSIS [None]
  - PNEUMONIA [None]
